FAERS Safety Report 10553531 (Version 4)
Quarter: 2014Q4

REPORT INFORMATION
  Report Type: Spontaneous
  Country: GB (occurrence: None)
  Receive Date: 20141028
  Receipt Date: 20141216
  Transmission Date: 20150529
  Serious: Yes (Hospitalization)
  Sender: FDA-Public Use
  Company Number: KAD201410-001297

PATIENT
  Age: 48 Year
  Sex: Female

DRUGS (3)
  1. PEGASYS [Suspect]
     Active Substance: PEGINTERFERON ALFA-2A
     Indication: HEPATITIS C
     Dates: start: 20130912
  2. RIBAVIRIN (RIBAVIRIN) [Suspect]
     Active Substance: RIBAVIRIN
     Indication: HEPATITIS C
     Dates: start: 20130912
  3. INCIVO [Suspect]
     Active Substance: TELAPREVIR
     Indication: HEPATITIS C
     Dosage: DOSAGE FORM: UNSPECIFIED, 1000 MG
     Route: 048
     Dates: start: 20130912

REACTIONS (15)
  - Anaemia [None]
  - Rash [None]
  - Abdominal pain lower [None]
  - Contusion [None]
  - Viral infection [None]
  - Malaise [None]
  - Neutropenia [None]
  - Pyrexia [None]
  - Pelvic pain [None]
  - Lymphocytosis [None]
  - Blood alkaline phosphatase increased [None]
  - Decreased appetite [None]
  - Presyncope [None]
  - Hypoaesthesia [None]
  - Dry skin [None]
